FAERS Safety Report 18372081 (Version 1)
Quarter: 2020Q4

REPORT INFORMATION
  Report Type: Report from Study
  Country: BE (occurrence: BE)
  Receive Date: 20201012
  Receipt Date: 20201012
  Transmission Date: 20210114
  Serious: Yes (Other)
  Sender: FDA-Public Use
  Company Number: PHHO2016BE002568

PATIENT
  Age: 42 Year
  Sex: Male
  Weight: 65.2 kg

DRUGS (15)
  1. BACLOFEN. [Concomitant]
     Active Substance: BACLOFEN
     Indication: MUSCLE SPASTICITY
     Dosage: 12.5 MG, QD AND 25 MG, BID
     Route: 048
     Dates: start: 20160201, end: 20160209
  2. D-CURE [Concomitant]
     Active Substance: CHOLECALCIFEROL
     Indication: PROPHYLAXIS
     Dosage: 2500 UNK, QW
     Route: 048
     Dates: start: 20130801
  3. SOLIFENACINE [Concomitant]
     Active Substance: SOLIFENACIN
     Indication: NERVOUS SYSTEM DISORDER
     Dosage: 5 MG, QD
     Route: 065
     Dates: start: 20160211
  4. CIALIS [Concomitant]
     Active Substance: TADALAFIL
     Indication: ERECTILE DYSFUNCTION
     Dosage: 5 MG, PRN
     Route: 048
     Dates: start: 201001
  5. MOVICOL [Concomitant]
     Active Substance: POLYETHYLENE GLYCOL 3350\POTASSIUM CHLORIDE\SODIUM BICARBONATE\SODIUM CHLORIDE
     Indication: CONSTIPATION
     Dosage: 1 UNK, QD
     Route: 048
     Dates: start: 20160129
  6. VESICARE [Concomitant]
     Active Substance: SOLIFENACIN SUCCINATE
     Indication: NEUROGENIC BLADDER
     Dosage: 5 MG, QD
     Route: 048
     Dates: start: 20160211
  7. VOLTAPATCH [Concomitant]
     Indication: NECK PAIN
     Dosage: UNK, QD
     Route: 061
     Dates: start: 20160211
  8. NICOTINE. [Concomitant]
     Active Substance: NICOTINE
     Indication: SMOKING CESSATION THERAPY
     Route: 048
     Dates: start: 20160202
  9. TRAVOCORT [Concomitant]
     Active Substance: DIFLUCORTOLONE VALERATE\ISOCONAZOLE NITRATE
     Indication: SEBORRHOEIC DERMATITIS
     Dosage: MG, QOD
     Route: 061
     Dates: start: 20160203, end: 201603
  10. DULCOLAX NOS [Concomitant]
     Active Substance: BISACODYL OR DOCUSATE SODIUM
     Indication: CONSTIPATION
     Dosage: 1 UNK, QD
     Route: 048
     Dates: start: 20160210
  11. PLACEBO [Suspect]
     Active Substance: UNSPECIFIED INGREDIENT
     Indication: SECONDARY PROGRESSIVE MULTIPLE SCLEROSIS
     Dosage: UNK
     Route: 048
     Dates: start: 20141014
  12. BACLOFEN. [Concomitant]
     Active Substance: BACLOFEN
     Dosage: 25 MG, BID
     Route: 048
     Dates: start: 20160210
  13. BACLOFENE [Concomitant]
     Active Substance: BACLOFEN
     Indication: MUSCLE SPASTICITY
     Dosage: 25 MG, UNK
     Route: 065
     Dates: start: 20160118
  14. XANAX [Concomitant]
     Active Substance: ALPRAZOLAM
     Indication: ANXIETY
     Dosage: 0.5 MG, PRN
     Route: 048
     Dates: start: 20160119
  15. BAF312 [Suspect]
     Active Substance: SIPONIMOD
     Indication: SECONDARY PROGRESSIVE MULTIPLE SCLEROSIS
     Dosage: UNK
     Route: 048
     Dates: start: 20160205, end: 20160215

REACTIONS (4)
  - Photophobia [Recovered/Resolved]
  - Depression suicidal [Recovered/Resolved]
  - Palpitations [Recovered/Resolved]
  - Fatigue [Recovered/Resolved]

NARRATIVE: CASE EVENT DATE: 20160207
